FAERS Safety Report 9177654 (Version 1)
Quarter: 2013Q1

REPORT INFORMATION
  Report Type: Spontaneous
  Country: IT (occurrence: IT)
  Receive Date: 20130321
  Receipt Date: 20130321
  Transmission Date: 20140127
  Serious: Yes (Life-Threatening)
  Sender: FDA-Public Use
  Company Number: IT-PFIZER INC-2013092566

PATIENT
  Age: 77 Year
  Sex: Female

DRUGS (1)
  1. TRIAZOLAM [Suspect]
     Dosage: 30 DF, TOTAL DOSE
     Route: 048
     Dates: start: 20130130, end: 20130130

REACTIONS (2)
  - Drug abuse [Recovered/Resolved]
  - Suicide attempt [Recovered/Resolved]
